FAERS Safety Report 10539739 (Version 2)
Quarter: 2014Q4

REPORT INFORMATION
  Report Type: Spontaneous
  Country: SE (occurrence: SE)
  Receive Date: 20141024
  Receipt Date: 20141024
  Transmission Date: 20150529
  Serious: Yes (Hospitalization)
  Sender: FDA-Public Use
  Company Number: SE-ASPEN PHARMA TRADING LIMITED US-AG-2012-1454

PATIENT
  Age: 73 Year
  Sex: Female

DRUGS (4)
  1. LEUKERAN [Suspect]
     Active Substance: CHLORAMBUCIL
     Dosage: 2 TABLETS PER DAY
     Route: 048
     Dates: start: 201107, end: 201109
  2. LEUKERAN [Suspect]
     Active Substance: CHLORAMBUCIL
     Dosage: 1 TABLET PER DAY
     Route: 048
     Dates: start: 201109
  3. LEUKERAN [Suspect]
     Active Substance: CHLORAMBUCIL
     Indication: LYMPHOMA
     Dosage: 4 TABLET PER DAY
     Route: 048
     Dates: end: 201107
  4. TRAMADOL [Concomitant]
     Active Substance: TRAMADOL
     Indication: BACK PAIN
     Route: 065

REACTIONS (7)
  - Infection [Unknown]
  - Nail disorder [Unknown]
  - Teeth brittle [Unknown]
  - Alopecia [Unknown]
  - Leukopenia [Not Recovered/Not Resolved]
  - Pyrexia [Unknown]
  - Dizziness [Unknown]

NARRATIVE: CASE EVENT DATE: 201204
